FAERS Safety Report 7266785 (Version 2)
Quarter: 2014Q1

REPORT INFORMATION
  Report Type: Spontaneous
  Country: US (occurrence: US)
  Receive Date: 20100201
  Receipt Date: 20140129
  Transmission Date: 20141002
  Serious: Yes (Other)
  Sender: FDA-Public Use
  Company Number: US-JNJFOC-20100110889

PATIENT
  Age: 66 Year
  Sex: Female

DRUGS (5)
  1. DURAGESIC [Suspect]
     Indication: PAIN
     Route: 062
     Dates: start: 201001
  2. DURAGESIC [Suspect]
     Indication: PAIN
     Route: 062
  3. DURAGESIC [Suspect]
     Indication: PAIN
     Route: 062
     Dates: end: 201001
  4. FENTANYL TRANSDERMAL SYSTEM [Suspect]
     Indication: PAIN
     Route: 062
  5. DURAGESIC [Suspect]
     Indication: PAIN
     Route: 062
     Dates: start: 201001, end: 201001

REACTIONS (9)
  - Leukaemia [Not Recovered/Not Resolved]
  - Malaise [Recovered/Resolved]
  - Dyspnoea [Recovered/Resolved]
  - Palpitations [Recovered/Resolved]
  - Euphoric mood [Recovered/Resolved]
  - Product quality issue [Recovered/Resolved]
  - Inadequate analgesia [Recovered/Resolved]
  - Fatigue [Recovered/Resolved]
  - Incorrect drug administration rate [Recovered/Resolved]
